FAERS Safety Report 5220413-8 (Version None)
Quarter: 2007Q1

REPORT INFORMATION
  Report Type: 
  Country: None (occurrence: None)
  Receive Date: 20061201
  Receipt Date: 20060713
  Transmission Date: 20070707
  Serious: No
  Sender: FDA-Public Use
  Company Number: 2006PV017480

PATIENT
  Age: 69 Year
  Sex: Male
  Weight: 136.0791 kg

DRUGS (3)
  1. BYETTA [Suspect]
     Indication: DIABETES MELLITUS NON-INSULIN-DEPENDENT
     Dosage: SEE IMAGE
     Route: 058
     Dates: start: 20060601, end: 20060701
  2. BYETTA [Suspect]
     Indication: DIABETES MELLITUS NON-INSULIN-DEPENDENT
     Dosage: SEE IMAGE
     Route: 058
     Dates: start: 20060703, end: 20060707
  3. METFORMIN HCL [Concomitant]

REACTIONS (6)
  - ABDOMINAL DISTENSION [None]
  - CONSTIPATION [None]
  - DECREASED APPETITE [None]
  - FAECAL VOLUME DECREASED [None]
  - UNEVALUABLE EVENT [None]
  - URINE OUTPUT DECREASED [None]
